FAERS Safety Report 21057512 (Version 1)
Quarter: 2022Q3

REPORT INFORMATION
  Report Type: Spontaneous
  Country: GB (occurrence: GB)
  Receive Date: 20220708
  Receipt Date: 20220708
  Transmission Date: 20221027
  Serious: Yes (Hospitalization, Other)
  Sender: FDA-Public Use
  Company Number: GB-ELI_LILLY_AND_COMPANY-GB202206013111

PATIENT
  Age: 70 Year
  Sex: Female

DRUGS (1)
  1. HUMALOG [Suspect]
     Active Substance: INSULIN LISPRO
     Indication: Type 2 diabetes mellitus
     Dosage: UNK, UNKNOWN
     Route: 065

REACTIONS (5)
  - Gastrointestinal disorder [Unknown]
  - Angiopathy [Unknown]
  - Feeding disorder [Unknown]
  - Dementia Alzheimer^s type [Unknown]
  - Cardiac failure [Unknown]

NARRATIVE: CASE EVENT DATE: 20180101
